FAERS Safety Report 6384778-6 (Version None)
Quarter: 2009Q4

REPORT INFORMATION
  Report Type: 
  Country: None (occurrence: None)
  Receive Date: 20091001
  Receipt Date: 20090924
  Transmission Date: 20100525
  Serious: Yes (Death, Other)
  Sender: FDA-Public Use
  Company Number: US-AMGEN-US365805

PATIENT
  Sex: Male

DRUGS (3)
  1. NPLATE [Suspect]
     Indication: IDIOPATHIC THROMBOCYTOPENIC PURPURA
     Dates: start: 20081023, end: 20081208
  2. UNSPECIFIED ANTINEOPLASTIC AGENT [Concomitant]
  3. BLOOD CELLS, PACKED HUMAN [Concomitant]

REACTIONS (2)
  - DRUG INEFFECTIVE [None]
  - PERIPHERAL T-CELL LYMPHOMA UNSPECIFIED [None]
